FAERS Safety Report 6924940-4 (Version None)
Quarter: 2010Q3

REPORT INFORMATION
  Report Type: 
  Country: None (occurrence: None)
  Receive Date: 20100816
  Receipt Date: 20100805
  Transmission Date: 20110219
  Serious: Yes (Other)
  Sender: FDA-Public Use
  Company Number: IN-PFIZER INC-2010097763

PATIENT
  Age: 52 Year
  Sex: Female

DRUGS (1)
  1. MAGNEX [Suspect]
     Indication: SEPSIS
     Dosage: UNK

REACTIONS (1)
  - FULL BLOOD COUNT DECREASED [None]
